FAERS Safety Report 18677184 (Version 4)
Quarter: 2022Q2

REPORT INFORMATION
  Report Type: Report from Study
  Country: US (occurrence: US)
  Receive Date: 20201229
  Receipt Date: 20220405
  Transmission Date: 20220721
  Serious: Yes (Hospitalization)
  Sender: FDA-Public Use
  Company Number: US-PFIZER INC-2020514160

PATIENT
  Age: 14 Year
  Sex: Female
  Weight: 46.4 kg

DRUGS (11)
  1. TEMSIROLIMUS [Suspect]
     Active Substance: TEMSIROLIMUS
     Indication: Embryonal rhabdomyosarcoma
     Dosage: 15 MG/M2 ON D1,8,15 (C 1-4 )
     Route: 042
  2. TEMSIROLIMUS [Suspect]
     Active Substance: TEMSIROLIMUS
     Dosage: 15 MG/M2, D1,8,15 (C8-10)
     Route: 042
  3. TEMSIROLIMUS [Suspect]
     Active Substance: TEMSIROLIMUS
     Dosage: 15 MG/M2, D1,8,15 (C 11-14)
     Route: 042
     Dates: end: 20200605
  4. CAMPTOSAR [Suspect]
     Active Substance: IRINOTECAN HYDROCHLORIDE
     Indication: Embryonal rhabdomyosarcoma
     Dosage: 50 MG/M2, D1-5 OF C2 AND 4
     Route: 042
  5. CAMPTOSAR [Suspect]
     Active Substance: IRINOTECAN HYDROCHLORIDE
     Dosage: 50 MG/M2,  D1-5 OF C6, 7, 9
     Route: 042
  6. CAMPTOSAR [Suspect]
     Active Substance: IRINOTECAN HYDROCHLORIDE
     Dosage: 50 MG/M2, D1-5 OF C11 AND 13
     Route: 042
     Dates: end: 20200321
  7. VINCRISTINE SULFATE [Suspect]
     Active Substance: VINCRISTINE SULFATE
     Indication: Embryonal rhabdomyosarcoma
     Dosage: 1.5 MG/M2, D 1,8,15 OF C 1-4
     Route: 042
  8. VINCRISTINE SULFATE [Suspect]
     Active Substance: VINCRISTINE SULFATE
     Dosage: 1.5 MG/M2, D1 OF C5+10 AND D1,8 OF C6,7,9 AND D1,8,15 OF C8
     Route: 042
  9. VINCRISTINE SULFATE [Suspect]
     Active Substance: VINCRISTINE SULFATE
     Dosage: 1.5 MG/M2, D1,8,15 OF C11, D1 OF C12,14 AND D1,8 OF C13
     Route: 042
     Dates: end: 20200521
  10. CYCLOPHOSPHAMIDE [Suspect]
     Active Substance: CYCLOPHOSPHAMIDE
     Indication: Embryonal rhabdomyosarcoma
     Dosage: 1200 MG/M2, D1 OF C1+3, D1  OF C5,8,10 AND D1 OF C12,14
     Dates: end: 20201123
  11. DACTINOMYCIN [Suspect]
     Active Substance: DACTINOMYCIN
     Indication: Embryonal rhabdomyosarcoma
     Dosage: 0.05 MG/KG, D1 OF C1,3, 5, 8, 10, 12,14
     Route: 042
     Dates: end: 20200521

REACTIONS (1)
  - Middle ear inflammation [Not Recovered/Not Resolved]

NARRATIVE: CASE EVENT DATE: 20201215
